FAERS Safety Report 5775853-5 (Version None)
Quarter: 2008Q2

REPORT INFORMATION
  Report Type: 
  Country: None (occurrence: None)
  Receive Date: 20080612
  Receipt Date: 20080530
  Transmission Date: 20081010
  Serious: Yes (Hospitalization)
  Sender: FDA-Public Use
  Company Number: 2008JP000245

PATIENT
  Age: 45 Year
  Sex: Female
  Weight: 39.5 kg

DRUGS (14)
  1. TACROLIMUS [Suspect]
     Indication: LUPUS NEPHRITIS
     Dosage: 3 MG, ORAL
     Route: 048
     Dates: start: 20070809, end: 20070918
  2. PREDNISOLONE [Suspect]
     Indication: LUPUS NEPHRITIS
     Dosage: 16 MG/D, ORAL; 20 MG/D, ORAL; 15 MG/D, ORAL; 12.5 MG/D, ORAL; 10 MG, ORAL
     Route: 048
     Dates: start: 20040907, end: 20070918
  3. PREDNISOLONE [Suspect]
     Indication: LUPUS NEPHRITIS
     Dosage: 16 MG/D, ORAL; 20 MG/D, ORAL; 15 MG/D, ORAL; 12.5 MG/D, ORAL; 10 MG, ORAL
     Route: 048
     Dates: start: 20071030, end: 20071112
  4. PREDNISOLONE [Suspect]
     Indication: LUPUS NEPHRITIS
     Dosage: 16 MG/D, ORAL; 20 MG/D, ORAL; 15 MG/D, ORAL; 12.5 MG/D, ORAL; 10 MG, ORAL
     Route: 048
     Dates: start: 20071113, end: 20071203
  5. PREDNISOLONE [Suspect]
     Indication: LUPUS NEPHRITIS
     Dosage: 16 MG/D, ORAL; 20 MG/D, ORAL; 15 MG/D, ORAL; 12.5 MG/D, ORAL; 10 MG, ORAL
     Route: 048
     Dates: start: 20071204, end: 20071217
  6. PREDNISOLONE [Suspect]
     Indication: LUPUS NEPHRITIS
     Dosage: 16 MG/D, ORAL; 20 MG/D, ORAL; 15 MG/D, ORAL; 12.5 MG/D, ORAL; 10 MG, ORAL
     Route: 048
     Dates: start: 20071218
  7. PREDNISOLONE [Suspect]
     Indication: LUPUS NEPHRITIS
     Dosage: 20 MG,
     Dates: start: 20070919, end: 20071029
  8. ROPION(FLURBIPROFEN AXETIL) F [Suspect]
     Dosage: 5 ML,
     Dates: start: 20070928, end: 20071008
  9. LIPITOR [Concomitant]
  10. ALTAT (ROXATIDINE ACETATE HYDROCHLORIDE) PER ORAL NOS [Concomitant]
  11. BONALON (ALENDRONIC ACID) PER ORAL NOS [Concomitant]
  12. SULPERAZON (SULBACTAM) INJECTION [Concomitant]
  13. ALBUMIN (ALBUMIN HUMAN) INJECTION [Concomitant]
  14. ELCITONIN (ELCATONIN) INJECTION [Concomitant]

REACTIONS (10)
  - ANAL HAEMORRHAGE [None]
  - BACK PAIN [None]
  - DISEASE RECURRENCE [None]
  - GAMMA-GLUTAMYLTRANSFERASE INCREASED [None]
  - HYPOALBUMINAEMIA [None]
  - MOBILITY DECREASED [None]
  - PLATELET COUNT DECREASED [None]
  - PNEUMONIA [None]
  - RENAL IMPAIRMENT [None]
  - SPINAL COMPRESSION FRACTURE [None]
